FAERS Safety Report 4870061-4 (Version None)
Quarter: 2005Q4

REPORT INFORMATION
  Report Type: 
  Country: None (occurrence: None)
  Receive Date: 20051229
  Receipt Date: 20051229
  Transmission Date: 20060501
  Serious: Yes (Hospitalization, Other)
  Sender: FDA-Public Use
  Company Number: None

PATIENT
  Sex: Male
  Weight: 76 kg

DRUGS (2)
  1. CYTARABINE [Suspect]
     Indication: ACUTE MYELOID LEUKAEMIA
     Dosage: SEE IMAGE
     Route: 042
     Dates: start: 20051117, end: 20051121
  2. DAUNORUBICIN [Suspect]
     Dosage: SEE IMAGE
     Route: 042
     Dates: start: 20051117

REACTIONS (4)
  - CONTUSION [None]
  - FEBRILE NEUTROPENIA [None]
  - PETECHIAE [None]
  - PNEUMONIA BACTERIAL [None]
